FAERS Safety Report 9132159 (Version 8)
Quarter: 2014Q4

REPORT INFORMATION
  Report Type: Report from Study
  Country: US (occurrence: US)
  Receive Date: 20130208
  Receipt Date: 20141021
  Transmission Date: 20150529
  Serious: Yes (Death, Hospitalization)
  Sender: FDA-Public Use
  Company Number: US-ROCHE-1188616

PATIENT
  Age: 60 Year
  Sex: Male
  Weight: 52.03 kg

DRUGS (18)
  1. OCTREOTIDE ACETATE. [Suspect]
     Active Substance: OCTREOTIDE ACETATE
     Dosage: DATE OF LAST DOSE PRIOR TO SAE: 28/MAY/2013?LAST DOSE ON; 09/DEC/2013 CYCLE 24, DAY 1
     Route: 030
     Dates: start: 20120227
  2. PROSCAR [Concomitant]
     Active Substance: FINASTERIDE
  3. ZOFRAN [Concomitant]
     Active Substance: ONDANSETRON HYDROCHLORIDE
  4. BEVACIZUMAB [Suspect]
     Active Substance: BEVACIZUMAB
     Indication: NEUROENDOCRINE CARCINOMA
     Dosage: LAST DOSE RECEIVED ON 19/DEC/2012, C11 DAY 15 DOSING
     Route: 042
     Dates: start: 20120227
  5. BEVACIZUMAB [Suspect]
     Active Substance: BEVACIZUMAB
     Dosage: LAST DOSE ON 24/DEC/2013 CYCLE 24 DAY 16
     Route: 042
     Dates: start: 20131224
  6. EVEROLIMUS [Suspect]
     Active Substance: EVEROLIMUS
     Dosage: DATE OF LAST DOSE PRIOR TO SAE: 04/JUN/2013, C16, DOSE REDUCED TO 5 MG?LAST DOSE ON 13/JUN/2013 CYCL
     Route: 048
     Dates: start: 20120227
  7. BEVACIZUMAB [Suspect]
     Active Substance: BEVACIZUMAB
     Dosage: LAST DOSE RECIEVED ON 11/JUN/2013, C17 DAY 1 AND 15 DOSING
     Route: 042
     Dates: start: 20120227
  8. OCTREOTIDE ACETATE. [Suspect]
     Active Substance: OCTREOTIDE ACETATE
     Indication: NEUROENDOCRINE CARCINOMA
     Dosage: DATE OF LAST DOSE PRIOR TO SAE: 03/DEC/2012
     Route: 030
     Dates: start: 20120227
  9. HUMALOG [Concomitant]
     Active Substance: INSULIN LISPRO
  10. LOMOTIL (UNITED STATES) [Concomitant]
  11. EVEROLIMUS [Suspect]
     Active Substance: EVEROLIMUS
     Indication: NEUROENDOCRINE CARCINOMA
     Route: 048
     Dates: start: 20120227
  12. LISINOPRIL. [Suspect]
     Active Substance: LISINOPRIL
     Indication: PRODUCT USED FOR UNKNOWN INDICATION
     Route: 065
  13. LANTUS [Concomitant]
     Active Substance: INSULIN GLARGINE
  14. EVEROLIMUS [Suspect]
     Active Substance: EVEROLIMUS
     Dosage: DATE OF LAST DOSE PRIOR TO SAE: 30/DEC/2012
     Route: 048
     Dates: start: 20120227
  15. HYDROCHLOROTHIAZIDE. [Suspect]
     Active Substance: HYDROCHLOROTHIAZIDE
     Indication: PRODUCT USED FOR UNKNOWN INDICATION
     Route: 065
  16. LASIX [Suspect]
     Active Substance: FUROSEMIDE
     Indication: PRODUCT USED FOR UNKNOWN INDICATION
     Route: 065
  17. SPIRONOLACTONE. [Suspect]
     Active Substance: SPIRONOLACTONE
     Indication: PRODUCT USED FOR UNKNOWN INDICATION
     Route: 065
  18. PAXIL (UNITED STATES) [Concomitant]

REACTIONS (7)
  - Sepsis [Not Recovered/Not Resolved]
  - Hepatic encephalopathy [Recovered/Resolved]
  - Hypotension [Not Recovered/Not Resolved]
  - Acute kidney injury [Not Recovered/Not Resolved]
  - Hepatic encephalopathy [Fatal]
  - Dizziness [Recovered/Resolved]
  - Ascites [Recovered/Resolved]

NARRATIVE: CASE EVENT DATE: 20121221
